FAERS Safety Report 5971743-3 (Version None)
Quarter: 2008Q4

REPORT INFORMATION
  Report Type: 
  Country: None (occurrence: None)
  Receive Date: 20081126
  Receipt Date: 20081126
  Transmission Date: 20090506
  Serious: Yes (Hospitalization)
  Sender: FDA-Public Use
  Company Number: None

PATIENT
  Sex: Female
  Weight: 52.6173 kg

DRUGS (7)
  1. NORMAL SALINE PFS NDC#68884-0900-10 AMSINO MEDICAL [Suspect]
     Indication: INTRAVENOUS CATHETER MANAGEMENT
     Dosage: 10ML IV
     Route: 042
     Dates: end: 20081111
  2. HEPARIN [Suspect]
     Indication: INTRAVENOUS CATHETER MANAGEMENT
     Dosage: 5ML IV
     Route: 042
     Dates: end: 20081111
  3. NEURONTIN [Concomitant]
  4. KEPPRA [Concomitant]
  5. TOPAMAX [Concomitant]
  6. KLONOPIN [Concomitant]
  7. PREVACID [Concomitant]

REACTIONS (4)
  - CONVULSION [None]
  - HYPERSENSITIVITY [None]
  - RESPIRATORY RATE INCREASED [None]
  - URTICARIA [None]
